FAERS Safety Report 25141311 (Version 1)
Quarter: 2025Q1

REPORT INFORMATION
  Report Type: Spontaneous
  Country: RS (occurrence: RS)
  Receive Date: 20250331
  Receipt Date: 20250331
  Transmission Date: 20250409
  Serious: Yes (Hospitalization, Other)
  Sender: TEVA
  Company Number: RS-TEVA-VS-3313868

PATIENT
  Age: 45 Year
  Sex: Male

DRUGS (7)
  1. OLANZAPINE [Suspect]
     Active Substance: OLANZAPINE
     Indication: Product used for unknown indication
     Route: 065
  2. VENLAFAXINE HYDROCHLORIDE [Suspect]
     Active Substance: VENLAFAXINE HYDROCHLORIDE
     Indication: Product used for unknown indication
     Route: 065
  3. MIRTAZAPINE [Suspect]
     Active Substance: MIRTAZAPINE
     Indication: Product used for unknown indication
     Route: 065
     Dates: end: 2022
  4. PREGABALIN [Suspect]
     Active Substance: PREGABALIN
     Indication: Product used for unknown indication
     Route: 065
     Dates: end: 2022
  5. SERTACONAZOLE NITRATE [Suspect]
     Active Substance: SERTACONAZOLE NITRATE
     Indication: Product used for unknown indication
     Route: 065
  6. CLONAZEPAM [Suspect]
     Active Substance: CLONAZEPAM
     Indication: Product used for unknown indication
     Route: 065
     Dates: end: 2022
  7. RISPERIDONE [Suspect]
     Active Substance: RISPERIDONE
     Route: 065

REACTIONS (14)
  - Suicidal ideation [Unknown]
  - Adverse event [Unknown]
  - Sedation [Unknown]
  - Sluggishness [Unknown]
  - Impaired work ability [Unknown]
  - Regressive behaviour [Unknown]
  - Asthenia [Unknown]
  - Apathy [Unknown]
  - Bedridden [Unknown]
  - Social problem [Unknown]
  - Hospitalisation [Unknown]
  - Weight increased [Unknown]
  - Listless [Unknown]
  - Self esteem decreased [Unknown]
